FAERS Safety Report 20161899 (Version 1)
Quarter: 2021Q4

REPORT INFORMATION
  Report Type: Spontaneous
  Country: CN (occurrence: None)
  Receive Date: 20211208
  Receipt Date: 20211208
  Transmission Date: 20220303
  Serious: Yes (Hospitalization)
  Sender: FDA-Public Use
  Company Number: 2021A853352

PATIENT
  Age: 11855 Day
  Sex: Male
  Weight: 75 kg

DRUGS (4)
  1. DAPAGLIFLOZIN [Suspect]
     Active Substance: DAPAGLIFLOZIN
     Indication: Diabetes mellitus
     Route: 048
     Dates: start: 20210728, end: 20210928
  2. METFORMIN [Concomitant]
     Active Substance: METFORMIN HYDROCHLORIDE
     Indication: Blood glucose
  3. PIOGLITAZONE [Concomitant]
     Active Substance: PIOGLITAZONE
     Indication: Blood glucose
  4. LOXENATIDE [Concomitant]
     Indication: Blood glucose

REACTIONS (2)
  - Ketosis [Recovering/Resolving]
  - Diabetic neuropathy [Unknown]

NARRATIVE: CASE EVENT DATE: 20210929
